FAERS Safety Report 18141518 (Version 4)
Quarter: 2021Q1

REPORT INFORMATION
  Report Type: Report from Study
  Country: US (occurrence: US)
  Receive Date: 20200812
  Receipt Date: 20210223
  Transmission Date: 20210419
  Serious: No
  Sender: FDA-Public Use
  Company Number: NVSC2020US221600

PATIENT
  Age: 79 Year
  Sex: Female

DRUGS (4)
  1. ENTRESTO [Suspect]
     Active Substance: SACUBITRIL\VALSARTAN
     Indication: CARDIAC FAILURE
     Dosage: 50 MG, BID
     Route: 048
     Dates: start: 201912, end: 20200814
  2. CARVEDILOL. [Suspect]
     Active Substance: CARVEDILOL
     Indication: PRODUCT USED FOR UNKNOWN INDICATION
     Dosage: 0.5 MG, BID (12.5 MG)
     Route: 065
  3. WARFARIN [Suspect]
     Active Substance: WARFARIN
     Indication: PRODUCT USED FOR UNKNOWN INDICATION
     Dosage: UNK
     Route: 065
     Dates: start: 2010
  4. ENTRESTO [Suspect]
     Active Substance: SACUBITRIL\VALSARTAN
     Dosage: 50 MG, BID
     Route: 048

REACTIONS (16)
  - Dyspnoea [Unknown]
  - Gastroenteritis viral [Unknown]
  - Weight decreased [Recovering/Resolving]
  - Stress [Unknown]
  - Weight increased [Unknown]
  - Cough [Unknown]
  - Sleep disorder [Not Recovered/Not Resolved]
  - Hypersomnia [Unknown]
  - Fatigue [Unknown]
  - Decreased appetite [Unknown]
  - Gait disturbance [Unknown]
  - Depression [Not Recovered/Not Resolved]
  - Throat clearing [Unknown]
  - Hypernatraemia [Unknown]
  - Asthenia [Unknown]
  - Sinus disorder [Unknown]

NARRATIVE: CASE EVENT DATE: 201912
